FAERS Safety Report 4526020-4 (Version None)
Quarter: 2004Q4

REPORT INFORMATION
  Report Type: 
  Country: None (occurrence: None)
  Receive Date: 20041129
  Receipt Date: 20040914
  Transmission Date: 20050328
  Serious: Yes (Hospitalization)
  Sender: FDA-Public Use
  Company Number: USA040978178

PATIENT
  Age: 50 Year
  Sex: Male

DRUGS (2)
  1. ZYPREXA [Suspect]
     Indication: PANIC DISORDER
     Dosage: 2.5 MG DAY
  2. XANAX (ALPRAZOLAM DUM) [Concomitant]

REACTIONS (1)
  - PANCREATITIS [None]
